FAERS Safety Report 4594390-7 (Version None)
Quarter: 2005Q1

REPORT INFORMATION
  Report Type: 
  Country: None (occurrence: None)
  Receive Date: 20050223
  Receipt Date: 20050214
  Transmission Date: 20050727
  Serious: Yes (Other)
  Sender: FDA-Public Use
  Company Number: 2005029324

PATIENT
  Sex: Female

DRUGS (1)
  1. FLAGYL [Suspect]
     Indication: ILL-DEFINED DISORDER
     Dosage: 4 GRAM (250 MG), ORAL
     Route: 048

REACTIONS (3)
  - ABORTION SPONTANEOUS [None]
  - DRUG EXPOSURE DURING PREGNANCY [None]
  - OVERDOSE [None]
